FAERS Safety Report 20859939 (Version 2)
Quarter: 2022Q2

REPORT INFORMATION
  Report Type: Spontaneous
  Country: AT (occurrence: AT)
  Receive Date: 20220523
  Receipt Date: 20220523
  Transmission Date: 20220721
  Serious: Yes (Hospitalization, Other)
  Sender: FDA-Public Use
  Company Number: AT-ASTELLAS-2022US017903

PATIENT
  Age: 75 Year
  Sex: Male

DRUGS (1)
  1. XTANDI [Suspect]
     Active Substance: ENZALUTAMIDE
     Indication: Prostate cancer
     Route: 065
     Dates: start: 202112, end: 20220222

REACTIONS (11)
  - Cerebrovascular accident [Unknown]
  - Epilepsy [Unknown]
  - Fall [Recovering/Resolving]
  - Cognitive disorder [Unknown]
  - Protein deficiency [Unknown]
  - Muscular weakness [Recovered/Resolved]
  - Fall [Unknown]
  - Memory impairment [Unknown]
  - Road traffic accident [Unknown]
  - Contusion [Unknown]
  - Vascular calcification [Unknown]

NARRATIVE: CASE EVENT DATE: 20220515
